FAERS Safety Report 16717297 (Version 1)
Quarter: 2019Q3

REPORT INFORMATION
  Report Type: Spontaneous
  Country: FR (occurrence: FR)
  Receive Date: 20190819
  Receipt Date: 20190819
  Transmission Date: 20191005
  Serious: Yes (Hospitalization)
  Sender: FDA-Public Use
  Company Number: PHHY2019FR188280

PATIENT
  Age: 60 Year
  Sex: Male

DRUGS (5)
  1. RIFADINE [Suspect]
     Active Substance: RIFAMPIN
     Indication: HAEMATOMA
     Dosage: 1200 MG, QD
     Route: 041
     Dates: start: 20190716
  2. VANCOMYCINE [Concomitant]
     Active Substance: VANCOMYCIN
     Indication: HAEMATOMA
     Dosage: 3 G, QD
     Route: 041
     Dates: start: 20190723, end: 20190726
  3. CEFTRIAXONE. [Concomitant]
     Active Substance: CEFTRIAXONE
     Indication: HAEMATOMA
     Dosage: 2 G, QD
     Route: 041
     Dates: start: 20190723, end: 20190729
  4. PANTOPRAZOL [Suspect]
     Active Substance: PANTOPRAZOLE SODIUM
     Indication: PRODUCT USED FOR UNKNOWN INDICATION
     Dosage: 40 MG, QD
     Route: 048
     Dates: start: 20190716
  5. IZALGI [Suspect]
     Active Substance: ACETAMINOPHEN\OPIUM
     Indication: PRODUCT USED FOR UNKNOWN INDICATION
     Dosage: 6 DF, QD
     Route: 048
     Dates: start: 20190716

REACTIONS (1)
  - Vascular purpura [Not Recovered/Not Resolved]

NARRATIVE: CASE EVENT DATE: 20190725
